FAERS Safety Report 5246808-4 (Version None)
Quarter: 2007Q1

REPORT INFORMATION
  Report Type: 
  Country: None (occurrence: None)
  Receive Date: 20070226
  Receipt Date: 20070214
  Transmission Date: 20070707
  Serious: Yes (Other)
  Sender: FDA-Public Use
  Company Number: DE-SHR-DE-2007-006428

PATIENT
  Sex: Female

DRUGS (2)
  1. SOTALOL HYDROCHLORIDE [Suspect]
  2. TAMIFLU [Suspect]
     Indication: INFLUENZA

REACTIONS (4)
  - CARDIAC DISCOMFORT [None]
  - DYSPNOEA [None]
  - INFLUENZA [None]
  - PYREXIA [None]
